FAERS Safety Report 4861752-X (Version None)
Quarter: 2005Q4

REPORT INFORMATION
  Report Type: 
  Country: None (occurrence: None)
  Receive Date: 20051220
  Receipt Date: 20051212
  Transmission Date: 20060501
  Serious: Yes (Death, Life-Threatening)
  Sender: FDA-Public Use
  Company Number: US-MERCK-0512USA01854

PATIENT
  Age: 53 Year
  Sex: Male

DRUGS (2)
  1. BEXTRA [Concomitant]
     Indication: MONARTHRITIS
     Route: 065
     Dates: end: 20030920
  2. VIOXX [Suspect]
     Indication: MONARTHRITIS
     Route: 065
     Dates: end: 20030920

REACTIONS (1)
  - CEREBROVASCULAR ACCIDENT [None]
